FAERS Safety Report 10615915 (Version 4)
Quarter: 2015Q1

REPORT INFORMATION
  Report Type: Report from Study
  Country: CA (occurrence: CA)
  Receive Date: 20141201
  Receipt Date: 20150310
  Transmission Date: 20150720
  Serious: Yes (Other)
  Sender: FDA-Public Use
  Company Number: PHHY2014CA092977

PATIENT
  Age: 66 Year
  Sex: Male

DRUGS (6)
  1. SANDOSTATIN [Suspect]
     Active Substance: OCTREOTIDE ACETATE
     Indication: CARCINOID TUMOUR
     Dosage: 100 UG, TID
     Route: 058
     Dates: start: 20140424
  2. SANDOSTATIN LAR DEPOT [Suspect]
     Active Substance: OCTREOTIDE ACETATE
     Dosage: 60 MG, EVERY 24 DAYS
     Route: 030
  3. AFINITOR [Suspect]
     Active Substance: EVEROLIMUS
     Dosage: UNK
     Route: 048
  4. SANDOSTATIN LAR DEPOT [Suspect]
     Active Substance: OCTREOTIDE ACETATE
     Indication: CARCINOID TUMOUR
     Dosage: 60 MG, EVERY 4 WEEKS
     Route: 030
     Dates: start: 20140501
  5. AFINITOR [Suspect]
     Active Substance: EVEROLIMUS
     Indication: CARCINOID TUMOUR
     Dosage: 10 MG, QD
     Route: 048
     Dates: start: 20140710
  6. AFINITOR [Suspect]
     Active Substance: EVEROLIMUS
     Dosage: 10 MG, EVERY TWO DAYS
     Route: 048
     Dates: start: 20140925

REACTIONS (6)
  - Oropharyngeal pain [Unknown]
  - Blood pressure systolic increased [Unknown]
  - Acne [Unknown]
  - Diarrhoea [Not Recovered/Not Resolved]
  - Pruritus [Unknown]
  - Abdominal pain [Unknown]

NARRATIVE: CASE EVENT DATE: 201407
